FAERS Safety Report 8830634 (Version 1)
Quarter: 2012Q4

REPORT INFORMATION
  Report Type: 
  Country: JP (occurrence: JP)
  Receive Date: 20121008
  Receipt Date: 20121008
  Transmission Date: 20130627
  Serious: Yes (Other)
  Sender: FDA-Public Use
  Company Number: JP-B.I. PHARMACEUTICALS,INC./RIDGEFIELD-2012-BP-24601NB

PATIENT

DRUGS (4)
  1. MICARDIS [Suspect]
     Route: 048
  2. MYSLEE [Suspect]
     Route: 048
  3. CELECOX [Suspect]
     Route: 048
  4. CONSTAN [Suspect]
     Route: 048

REACTIONS (1)
  - Road traffic accident [Unknown]
